FAERS Safety Report 9886429 (Version 2)
Quarter: 2014Q2

REPORT INFORMATION
  Report Type: Spontaneous
  Country: DE (occurrence: DE)
  Receive Date: 20140210
  Receipt Date: 20140407
  Transmission Date: 20141212
  Serious: Yes (Hospitalization)
  Sender: FDA-Public Use
  Company Number: DE-TEVA-460940GER

PATIENT
  Age: 5 Day
  Sex: 0

DRUGS (3)
  1. METFORMIN-RATIOPHARM 1000 MG FILMTABLETTEN [Suspect]
     Route: 065
  2. METFORMIN-RATIOPHARM 1000 MG FILMTABLETTEN [Suspect]
     Route: 063
  3. INSULIN [Concomitant]
     Route: 065

REACTIONS (1)
  - Neurodermatitis [Recovering/Resolving]
